FAERS Safety Report 7045652-5 (Version None)
Quarter: 2010Q4

REPORT INFORMATION
  Report Type: 
  Country: None (occurrence: None)
  Receive Date: 20101014
  Receipt Date: 20101005
  Transmission Date: 20110411
  Serious: Yes (Hospitalization)
  Sender: FDA-Public Use
  Company Number: JP-ROCHE-732426

PATIENT

DRUGS (5)
  1. AVASTIN [Suspect]
     Indication: LARGE INTESTINE CARCINOMA
     Route: 042
     Dates: end: 20100924
  2. FLUOROURACIL [Suspect]
     Indication: LARGE INTESTINE CARCINOMA
     Dosage: NOTE: DOSAGE IS UNCERTAIN.
     Route: 041
  3. FLUOROURACIL [Suspect]
     Dosage: NOTE: DOSAGE IS UNCERTAIN.  FORM: INTRAVENOUS BOLUS.
     Route: 041
  4. ELPLAT [Suspect]
     Indication: LARGE INTESTINE CARCINOMA
     Dosage: NOTE: DOSAGE IS UNCERTAIN.
     Route: 041
  5. LEUCOVORIN CALCIUM [Suspect]
     Indication: LARGE INTESTINE CARCINOMA
     Dosage: NOTE: DOSAGE IS UNCERTAIN.
     Route: 041

REACTIONS (3)
  - DUODENAL PERFORATION [None]
  - GASTRIC PERFORATION [None]
  - PERITONITIS [None]
